FAERS Safety Report 5988200-0 (Version None)
Quarter: 2008Q4

REPORT INFORMATION
  Report Type: 
  Country: None (occurrence: None)
  Receive Date: 20081210
  Receipt Date: 20081205
  Transmission Date: 20090506
  Serious: Yes (Death, Disabling)
  Sender: FDA-Public Use
  Company Number: JP-BRISTOL-MYERS SQUIBB COMPANY-14232334

PATIENT
  Age: 73 Year
  Sex: Female

DRUGS (12)
  1. TAXOL [Suspect]
     Indication: MALIGNANT PERITONEAL NEOPLASM
     Dosage: INITIATED 28MAY07, COMPLETED 6CYCLES, PERITONEAL CARCINOMA REPLASED SO TREATED WITH 2 MORE CYC,8DAYS
     Route: 041
     Dates: start: 20080430, end: 20080430
  2. TAXOL [Suspect]
     Indication: METASTATIC NEOPLASM
     Dosage: INITIATED 28MAY07, COMPLETED 6CYCLES, PERITONEAL CARCINOMA REPLASED SO TREATED WITH 2 MORE CYC,8DAYS
     Route: 041
     Dates: start: 20080430, end: 20080430
  3. PARAPLATIN [Suspect]
     Indication: MALIGNANT PERITONEAL NEOPLASM
     Dosage: INITIATED:28MAY07, COMPLETED 6CYCLES, PERITONEAL CARCINOMA REPLASED SO TREATED WITH 2 MORE CYC,8DAYS
     Route: 041
     Dates: start: 20080430, end: 20080430
  4. PARAPLATIN [Suspect]
     Indication: METASTATIC NEOPLASM
     Dosage: INITIATED:28MAY07, COMPLETED 6CYCLES, PERITONEAL CARCINOMA REPLASED SO TREATED WITH 2 MORE CYC,8DAYS
     Route: 041
     Dates: start: 20080430, end: 20080430
  5. MAGNESIUM OXIDE [Concomitant]
     Route: 048
     Dates: start: 20070501
  6. NAUZELIN [Concomitant]
     Route: 065
     Dates: start: 20070501
  7. LOXONIN [Concomitant]
     Route: 065
  8. NEU-UP [Concomitant]
     Route: 058
     Dates: start: 20070630, end: 20080507
  9. URSO 250 [Concomitant]
     Route: 048
     Dates: start: 19940613
  10. LOXONIN [Concomitant]
     Route: 048
     Dates: start: 20070501
  11. RABEPRAZOLE SODIUM [Concomitant]
     Route: 048
     Dates: start: 20070501
  12. GASMOTIN [Concomitant]
     Route: 048
     Dates: start: 20070501

REACTIONS (6)
  - ALOPECIA [None]
  - GASTROINTESTINAL NECROSIS [None]
  - GASTROINTESTINAL PERFORATION [None]
  - HYPOAESTHESIA [None]
  - NAUSEA [None]
  - WHITE BLOOD CELL COUNT DECREASED [None]
